FAERS Safety Report 7048754-2 (Version None)
Quarter: 2010Q4

REPORT INFORMATION
  Report Type: 
  Country: None (occurrence: None)
  Receive Date: 20101018
  Receipt Date: 20101012
  Transmission Date: 20110411
  Serious: No
  Sender: FDA-Public Use
  Company Number: US-BIOGENIDEC-2010BI035226

PATIENT
  Age: 52 Year
  Sex: Female

DRUGS (1)
  1. AVONEX [Suspect]
     Indication: MULTIPLE SCLEROSIS
     Route: 030
     Dates: start: 20040206

REACTIONS (5)
  - ABASIA [None]
  - COORDINATION ABNORMAL [None]
  - DYSGRAPHIA [None]
  - EMOTIONAL DISTRESS [None]
  - GAIT DISTURBANCE [None]
